FAERS Safety Report 4612606-5 (Version None)
Quarter: 2005Q1

REPORT INFORMATION
  Report Type: 
  Country: None (occurrence: None)
  Receive Date: 20050318
  Receipt Date: 20050314
  Transmission Date: 20050727
  Serious: Yes (Other)
  Sender: FDA-Public Use
  Company Number: PHBS2005CA03780

PATIENT
  Sex: Female

DRUGS (1)
  1. COMBIPATCH [Suspect]
     Dosage: 50 ESTR - 250 NORE UG/DAY
     Route: 062
     Dates: start: 20050131

REACTIONS (3)
  - EPISTAXIS [None]
  - HAEMATEMESIS [None]
  - VAGINAL HAEMORRHAGE [None]
